FAERS Safety Report 17288972 (Version 1)
Quarter: 2020Q1

REPORT INFORMATION
  Report Type: Spontaneous
  Country: US (occurrence: US)
  Receive Date: 20200120
  Receipt Date: 20200120
  Transmission Date: 20200409
  Serious: Yes (Other)
  Sender: FDA-Public Use
  Company Number: US-PFIZER INC-2020020308

PATIENT
  Age: 65 Year
  Sex: Female
  Weight: 71.66 kg

DRUGS (23)
  1. OXALIPLATIN. [Suspect]
     Active Substance: OXALIPLATIN
     Indication: METASTASES TO LIVER
  2. BEVACIZUMAB. [Suspect]
     Active Substance: BEVACIZUMAB
     Indication: METASTASES TO LIVER
  3. DEXAMETHASONE. [Concomitant]
     Active Substance: DEXAMETHASONE
     Indication: COLORECTAL CANCER STAGE IV
     Dosage: 12 MG, UNK
     Route: 048
  4. ONDANSETRON [Concomitant]
     Active Substance: ONDANSETRON
     Indication: METASTASES TO LIVER
     Dosage: 8 MG, 2X/DAY (2 DAYS ON DAYS 2 AND 3)
  5. BEVACIZUMAB. [Suspect]
     Active Substance: BEVACIZUMAB
     Indication: COLORECTAL CANCER STAGE IV
     Dosage: 7.5 MG/KG, CYCLIC
     Route: 042
  6. DEXAMETHASONE. [Concomitant]
     Active Substance: DEXAMETHASONE
     Indication: METASTASES TO LIVER
  7. IRON SULFATE [Concomitant]
     Active Substance: FERROUS SULFATE ANHYDROUS
     Dosage: 325 MG, 3X/DAY
  8. LEVOTHYROXINE. [Concomitant]
     Active Substance: LEVOTHYROXINE
     Dosage: 0.025 MG, DAILY
     Route: 048
  9. ACETYLSALICYLIC ACID [Concomitant]
     Active Substance: ASPIRIN
     Dosage: 81 MG, DAILY
  10. FISH OIL [Concomitant]
     Active Substance: FISH OIL
     Dosage: UNK UNK, 2X/DAY (ONE CAPSULE TWICE DAILY)
     Route: 048
  11. CAPECITABINE. [Suspect]
     Active Substance: CAPECITABINE
     Indication: METASTASES TO LIVER
     Dosage: 1500 MG/M2, DAILY (INCREASED TO 2500 MG)
  12. CAPECITABINE. [Suspect]
     Active Substance: CAPECITABINE
     Dosage: 2000 MG, DAILY (DOSAGE WAS DECREASED)
  13. ONDANSETRON [Concomitant]
     Active Substance: ONDANSETRON
     Indication: COLORECTAL CANCER STAGE IV
     Dosage: 16 MG, UNK
     Route: 048
  14. NIFEDIPINE. [Concomitant]
     Active Substance: NIFEDIPINE
     Dosage: 30 MG, DAILY (EXTENDED-RELEASE)
     Route: 048
  15. OXALIPLATIN. [Suspect]
     Active Substance: OXALIPLATIN
     Indication: COLORECTAL CANCER STAGE IV
     Dosage: 100 MG/M2, CYCLIC (ON DAY 1)
     Route: 042
  16. CAPECITABINE. [Suspect]
     Active Substance: CAPECITABINE
     Dosage: 1750 MG/M2, DAILY (INCREASED TO 3000 MG)
  17. METOCLOPRAMIDE. [Concomitant]
     Active Substance: METOCLOPRAMIDE
     Indication: COLORECTAL CANCER STAGE IV
     Dosage: 10 MG, UNK
     Route: 048
  18. METOCLOPRAMIDE. [Concomitant]
     Active Substance: METOCLOPRAMIDE
     Indication: METASTASES TO LIVER
     Dosage: 10 MG, UNK (EVERY EIGHT HOURS AS NEEDED FOR NAUSEA)
     Route: 048
  19. POTASSIUM CHLORIDE. [Concomitant]
     Active Substance: POTASSIUM CHLORIDE
     Dosage: 20 MEQ, DAILY
  20. CAPECITABINE. [Suspect]
     Active Substance: CAPECITABINE
     Indication: COLORECTAL CANCER STAGE IV
     Dosage: 1250 MG/M2, DAILY (1000 MG TWICE DAILY) ON DAYS 1-14
     Route: 048
  21. CAPECITABINE. [Suspect]
     Active Substance: CAPECITABINE
     Dosage: 2500 MG, DAILY (REDUCTION OF THE CAPECITABINE DOSAGE FROM 3000 TO 2500 MG/DAY)
  22. CAPECITABINE. [Suspect]
     Active Substance: CAPECITABINE
     Dosage: 2500 MG, DAILY (RECEIVING CAPECITABINE 2500 MG DAILY)
  23. LOVASTATIN. [Concomitant]
     Active Substance: LOVASTATIN
     Dosage: 40 MG, DAILY
     Route: 048

REACTIONS (1)
  - Cerebellar ataxia [Recovered/Resolved]
